FAERS Safety Report 9861829 (Version 2)
Quarter: 2014Q1

REPORT INFORMATION
  Report Type: Report from Study
  Country: CA (occurrence: CA)
  Receive Date: 20140203
  Receipt Date: 20140203
  Transmission Date: 20141002
  Serious: Yes (Other)
  Sender: FDA-Public Use
  Company Number: CA-ROCHE-1152615

PATIENT
  Age: 60 Year
  Sex: Female
  Weight: 113.4 kg

DRUGS (8)
  1. RITUXAN [Suspect]
     Indication: RHEUMATOID ARTHRITIS
     Route: 042
     Dates: start: 20121031
  2. CELEBREX [Concomitant]
  3. HYZAAR [Concomitant]
  4. METFORMIN [Concomitant]
  5. TYLENOL [Concomitant]
     Route: 065
  6. DIPHENHYDRAMINE HCL [Concomitant]
     Indication: PREMEDICATION
     Route: 048
  7. ACETAMINOPHEN [Concomitant]
     Indication: PREMEDICATION
     Route: 048
  8. METHYLPREDNISOLONE [Concomitant]
     Indication: PREMEDICATION
     Route: 042

REACTIONS (3)
  - Infusion related reaction [Unknown]
  - Myocardial infarction [Unknown]
  - Nasopharyngitis [Unknown]
